FAERS Safety Report 6940231-X (Version None)
Quarter: 2010Q3

REPORT INFORMATION
  Report Type: 
  Country: None (occurrence: None)
  Receive Date: 20100825
  Receipt Date: 20100813
  Transmission Date: 20110219
  Serious: Yes (Hospitalization, Other)
  Sender: FDA-Public Use
  Company Number: US-ELI_LILLY_AND_COMPANY-US201008004073

PATIENT
  Sex: Female

DRUGS (3)
  1. HUMALOG [Suspect]
     Indication: DIABETES MELLITUS
     Dosage: UNK, AS NEEDED
  2. HUMULIN N [Suspect]
     Indication: DIABETES MELLITUS
     Dosage: UNK, AS NEEDED
  3. ARICEPT [Concomitant]
     Dosage: 10 MG, DAILY (1/D)

REACTIONS (7)
  - ABDOMINAL INFECTION [None]
  - ABDOMINAL PAIN [None]
  - BILE DUCT STONE [None]
  - DEMENTIA [None]
  - FISTULA [None]
  - MEMORY IMPAIRMENT [None]
  - PANCREATITIS [None]
